FAERS Safety Report 25326691 (Version 2)
Quarter: 2025Q2

REPORT INFORMATION
  Report Type: Spontaneous
  Country: US (occurrence: US)
  Receive Date: 20250516
  Receipt Date: 20250527
  Transmission Date: 20250716
  Serious: No
  Sender: SANOFI AVENTIS
  Company Number: US-SANOFI-02522019

PATIENT
  Age: 73 Year
  Sex: Female
  Weight: 57.73 kg

DRUGS (1)
  1. DUPIXENT [Suspect]
     Active Substance: DUPILUMAB
     Indication: Asthma
     Dosage: 200 MG, QOW
     Route: 058

REACTIONS (4)
  - Asthma [Unknown]
  - Product dose omission issue [Unknown]
  - Rebound effect [Unknown]
  - Illness [Unknown]

NARRATIVE: CASE EVENT DATE: 20250509
